FAERS Safety Report 20990044 (Version 1)
Quarter: 2022Q2

REPORT INFORMATION
  Report Type: Report from Study
  Country: US (occurrence: US)
  Receive Date: 20220621
  Receipt Date: 20220621
  Transmission Date: 20220720
  Serious: Yes (Other)
  Sender: FDA-Public Use
  Company Number: US-ABBVIE-22K-163-4434603-00

PATIENT
  Sex: Male
  Weight: 89.892 kg

DRUGS (12)
  1. DUOPA [Suspect]
     Active Substance: CARBIDOPA\LEVODOPA
     Indication: Parkinson^s disease
     Route: 050
     Dates: start: 20220317, end: 2022
  2. DUOPA [Suspect]
     Active Substance: CARBIDOPA\LEVODOPA
     Route: 050
     Dates: start: 20220407
  3. CLONAZEPAM [Concomitant]
     Active Substance: CLONAZEPAM
     Indication: Rapid eye movement sleep behaviour disorder
     Route: 048
  4. TADALAFIL [Concomitant]
     Active Substance: TADALAFIL
     Indication: Urinary tract disorder
     Route: 048
  5. FLUDROCORTISONE [Concomitant]
     Active Substance: FLUDROCORTISONE
     Indication: Hypotension
     Route: 048
  6. CARBIDOPA\LEVODOPA [Concomitant]
     Active Substance: CARBIDOPA\LEVODOPA
     Indication: Parkinson^s disease
     Dosage: 25-250MG
     Route: 048
  7. DULOXETINE [Concomitant]
     Active Substance: DULOXETINE
     Indication: Depression
     Route: 048
  8. DULOXETINE [Concomitant]
     Active Substance: DULOXETINE
     Indication: Anxiety
  9. PANTOPRAZOLE [Concomitant]
     Active Substance: PANTOPRAZOLE
     Indication: Gastrooesophageal reflux disease
     Route: 048
  10. RASAGILINE MESYLATE [Concomitant]
     Active Substance: RASAGILINE MESYLATE
     Indication: Parkinson^s disease
     Route: 048
  11. NEUPRO [Concomitant]
     Active Substance: ROTIGOTINE
     Indication: Parkinson^s disease
     Route: 061
  12. NEUPRO [Concomitant]
     Active Substance: ROTIGOTINE
     Route: 061

REACTIONS (12)
  - Loss of consciousness [Recovered/Resolved]
  - Fall [Recovered/Resolved]
  - Drug delivery system issue [Unknown]
  - Device programming error [Unknown]
  - Mobility decreased [Not Recovered/Not Resolved]
  - Eye contusion [Recovering/Resolving]
  - Head injury [Unknown]
  - Device issue [Unknown]
  - Device use error [Unknown]
  - Muscle spasms [Recovering/Resolving]
  - Unevaluable event [Unknown]
  - Freezing phenomenon [Not Recovered/Not Resolved]

NARRATIVE: CASE EVENT DATE: 20220101
